FAERS Safety Report 4794291-5 (Version None)
Quarter: 2005Q4

REPORT INFORMATION
  Report Type: 
  Country: None (occurrence: None)
  Receive Date: 20051007
  Receipt Date: 20051007
  Transmission Date: 20060501
  Serious: Yes (Life-Threatening)
  Sender: FDA-Public Use
  Company Number: None

PATIENT
  Age: 43 Year
  Sex: Female
  Weight: 63 kg

DRUGS (9)
  1. PACLITAXEL [Suspect]
     Indication: NON-SMALL CELL LUNG CANCER
     Dosage: 200 MG/M2-320 MG EVERY 21 DAYS IV DRIP [CYCLE # 2]
     Route: 041
  2. ERLOTONIB [Concomitant]
  3. OXYCONTIN [Concomitant]
  4. COLACE [Concomitant]
  5. COMPAZINE [Concomitant]
  6. LACTULOSE [Concomitant]
  7. AMBIEN [Concomitant]
  8. MAXAIR [Concomitant]
  9. SENOKOT [Concomitant]

REACTIONS (5)
  - ABDOMINAL PAIN [None]
  - DRUG HYPERSENSITIVITY [None]
  - DYSPNOEA [None]
  - FLUSHING [None]
  - OXYGEN SATURATION DECREASED [None]
